FAERS Safety Report 5426574-X (Version None)
Quarter: 2007Q3

REPORT INFORMATION
  Report Type: 
  Country: None (occurrence: None)
  Receive Date: 20070731
  Receipt Date: 20070622
  Transmission Date: 20080115
  Serious: No
  Sender: FDA-Public Use
  Company Number: 2006PV021542

PATIENT
  Age: 66 Year
  Sex: Female

DRUGS (9)
  1. EXENATIDE(EXENATIDE) PEN,DISPOSABLE [Suspect]
     Indication: TYPE 2 DIABETES MELLITUS
     Dosage: 5 UG, 2/D, SUBCUTANEOUS 5 UG, 2/D SUBCUTANEOUS 10 UG, 2/D, SUBCUTANEOUS 10 UG, 2/D, SUBCUTANEOUS
     Route: 058
     Dates: start: 20050101, end: 20070301
  2. EXENATIDE(EXENATIDE) PEN,DISPOSABLE [Suspect]
     Indication: TYPE 2 DIABETES MELLITUS
     Dosage: 5 UG, 2/D, SUBCUTANEOUS 5 UG, 2/D SUBCUTANEOUS 10 UG, 2/D, SUBCUTANEOUS 10 UG, 2/D, SUBCUTANEOUS
     Route: 058
     Dates: start: 20060916
  3. EXENATIDE(EXENATIDE) PEN,DISPOSABLE [Suspect]
     Indication: TYPE 2 DIABETES MELLITUS
     Dosage: 5 UG, 2/D, SUBCUTANEOUS 5 UG, 2/D SUBCUTANEOUS 10 UG, 2/D, SUBCUTANEOUS 10 UG, 2/D, SUBCUTANEOUS
     Route: 058
     Dates: start: 20070301
  4. EXENATIDE(EXENATIDE) PEN,DISPOSABLE [Suspect]
  5. PRANDIN (DEFLAZACORT) [Concomitant]
  6. METFORMIN HCL [Concomitant]
  7. ALBUTEROL [Concomitant]
  8. INTAL [Concomitant]
  9. AZMACORT [Concomitant]

REACTIONS (9)
  - ABDOMINAL DISTENSION [None]
  - ERUCTATION [None]
  - FATIGUE [None]
  - INSOMNIA [None]
  - NAUSEA [None]
  - PAIN [None]
  - POLLAKIURIA [None]
  - SOMNOLENCE [None]
  - WEIGHT DECREASED [None]
